FAERS Safety Report 15788805 (Version 1)
Quarter: 2019Q1

REPORT INFORMATION
  Report Type: Spontaneous
  Country: TW (occurrence: TW)
  Receive Date: 20190104
  Receipt Date: 20190104
  Transmission Date: 20190417
  Serious: Yes (Hospitalization)
  Sender: FDA-Public Use
  Company Number: TW-ROCHE-2238854

PATIENT
  Age: 62 Year
  Sex: Female
  Weight: 60 kg

DRUGS (10)
  1. GABAPENTIN. [Concomitant]
     Active Substance: GABAPENTIN
     Route: 048
  2. IMIPRAMINE [Concomitant]
     Active Substance: IMIPRAMINE
     Route: 048
  3. FEMARA [Concomitant]
     Active Substance: LETROZOLE
     Route: 065
     Dates: start: 20180511
  4. DENOSUMAB [Concomitant]
     Active Substance: DENOSUMAB
     Route: 065
     Dates: start: 201710, end: 201804
  5. IBRANCE [Concomitant]
     Active Substance: PALBOCICLIB
     Route: 065
     Dates: start: 20180511
  6. SENNOSIDE CALCIUM [Concomitant]
     Route: 065
     Dates: start: 20180830
  7. XELODA [Suspect]
     Active Substance: CAPECITABINE
     Indication: BREAST CANCER
     Route: 065
     Dates: start: 201710, end: 201804
  8. LORAZEPAM. [Concomitant]
     Active Substance: LORAZEPAM
     Route: 048
  9. FULVESTRANT. [Concomitant]
     Active Substance: FULVESTRANT
     Route: 065
     Dates: start: 201710, end: 201804
  10. OXYCODONE [Concomitant]
     Active Substance: OXYCODONE
     Route: 048

REACTIONS (1)
  - Impaired healing [Recovering/Resolving]

NARRATIVE: CASE EVENT DATE: 20180503
